FAERS Safety Report 26092682 (Version 1)
Quarter: 2025Q4

REPORT INFORMATION
  Report Type: Spontaneous
  Country: EU (occurrence: EU)
  Receive Date: 20251126
  Receipt Date: 20251126
  Transmission Date: 20260117
  Serious: No
  Sender: ALKEM
  Company Number: EU-ALKEM LABORATORIES LIMITED-DE-ALKEM-2025-00878

PATIENT

DRUGS (2)
  1. EVEROLIMUS [Suspect]
     Active Substance: EVEROLIMUS
     Indication: Prophylaxis against graft versus host disease
     Dosage: 1.6 MILLIGRAM/SQ. METER, QD ((IN TWO DIVIDED DOSES) )
     Route: 048
  2. MYCOPHENOLATE MOFETIL [Suspect]
     Active Substance: MYCOPHENOLATE MOFETIL
     Indication: Prophylaxis against graft versus host disease
     Dosage: 600 MILLIGRAM/SQ. METER, BID
     Route: 065

REACTIONS (1)
  - Mouth ulceration [Unknown]
